FAERS Safety Report 9312713 (Version 1)
Quarter: 2013Q2

REPORT INFORMATION
  Report Type: Report from Study
  Country: JP (occurrence: JP)
  Receive Date: 20130528
  Receipt Date: 20130528
  Transmission Date: 20140414
  Serious: Yes (Other)
  Sender: FDA-Public Use
  Company Number: JP-VERTEX PHARMACEUTICALS INC-AE-2012-010181

PATIENT
  Age: 59 Year
  Sex: Female

DRUGS (7)
  1. VX-950 (TELAPREVIR) [Suspect]
     Indication: CHRONIC HEPATITIS C
     Dosage: 2250 MG, QD
     Route: 048
     Dates: start: 20120515, end: 20120605
  2. VX-950 (TELAPREVIR) [Suspect]
     Dosage: 1500 MG, QD
     Route: 048
     Dates: start: 20120606, end: 20120626
  3. REBETOL [Suspect]
     Indication: CHRONIC HEPATITIS C
     Dosage: 600 MG, QD
     Route: 048
     Dates: start: 20120515, end: 20120612
  4. REBETOL [Suspect]
     Dosage: 400 MG, QD
     Route: 048
     Dates: start: 20120613, end: 20120626
  5. PEGINTRON [Suspect]
     Indication: CHRONIC HEPATITIS C
     Dosage: 80 ?G, QW
     Route: 058
     Dates: start: 20120515, end: 20120620
  6. ALLELOCK [Concomitant]
     Dosage: 2 DF, QD
     Route: 048
     Dates: start: 20120515, end: 20120626
  7. RIKKUNSHITO [Concomitant]
     Dosage: 7.5 G, QD
     Route: 048
     Dates: start: 20120515, end: 20120626

REACTIONS (1)
  - Retinopathy [Recovered/Resolved]
